FAERS Safety Report 8511265-9 (Version None)
Quarter: 2012Q3

REPORT INFORMATION
  Report Type: 
  Country: None (occurrence: None)
  Receive Date: 20120716
  Receipt Date: 20120711
  Transmission Date: 20120928
  Serious: Yes (Death)
  Sender: FDA-Public Use
  Company Number: IT-CELGENEUS-083-21880-12041869

PATIENT
  Sex: Female

DRUGS (7)
  1. THALIDOMIDE [Suspect]
     Indication: MULTIPLE MYELOMA
     Route: 048
     Dates: start: 20090601, end: 20110201
  2. DEXAMETHASONE [Concomitant]
     Route: 065
     Dates: start: 20110201, end: 20110601
  3. DEXAMETHASONE [Concomitant]
     Indication: MULTIPLE MYELOMA
     Route: 065
     Dates: start: 20090601, end: 20110201
  4. BACTRIM [Concomitant]
     Dosage: 1600 MILLIGRAM
     Route: 065
  5. CARVEDILOL [Concomitant]
     Route: 065
  6. REVLIMID [Suspect]
     Indication: MULTIPLE MYELOMA
     Route: 048
     Dates: start: 20110201, end: 20110601
  7. DARBEPOETIN [Concomitant]
     Dosage: 21.4286 MICROGRAM
     Route: 065

REACTIONS (2)
  - NO THERAPEUTIC RESPONSE [None]
  - MESOTHELIOMA [None]
